FAERS Safety Report 5347051-0 (Version None)
Quarter: 2007Q2

REPORT INFORMATION
  Report Type: 
  Country: None (occurrence: None)
  Receive Date: 20070604
  Receipt Date: 20070523
  Transmission Date: 20071010
  Serious: Yes (Other)
  Sender: FDA-Public Use
  Company Number: 2007321980

PATIENT
  Age: 7 Month
  Sex: Female
  Weight: 6.8 kg

DRUGS (1)
  1. BENADRYL [Suspect]
     Indication: RASH
     Dosage: 1/2 TEASPOON ONCE (1 IN 1 D), ORAL
     Route: 048
     Dates: start: 20070522, end: 20070522

REACTIONS (6)
  - DYSKINESIA [None]
  - LETHARGY [None]
  - MOOD ALTERED [None]
  - NO THERAPEUTIC RESPONSE [None]
  - ROSEOLA [None]
  - TONGUE PARALYSIS [None]
